FAERS Safety Report 7474671-X (Version None)
Quarter: 2011Q2

REPORT INFORMATION
  Report Type: 
  Country: None (occurrence: None)
  Receive Date: 20110509
  Receipt Date: 20110509
  Transmission Date: 20111010
  Serious: Yes (Hospitalization)
  Sender: FDA-Public Use
  Company Number: None

PATIENT
  Age: 61 Year
  Sex: Female
  Weight: 122.4712 kg

DRUGS (11)
  1. ADRIAMYCIN PFS [Suspect]
     Indication: BREAST CANCER
     Dosage: 60MG/M2
     Dates: start: 20110105, end: 20110303
  2. NEULASTA [Concomitant]
  3. MULTI-VITAMINS [Concomitant]
  4. ATIVAN [Concomitant]
  5. VITAMIN B-12 [Concomitant]
  6. VITAMIN D [Concomitant]
  7. PHENERGAN HCL [Concomitant]
  8. ZOFRAN [Concomitant]
  9. METFORMIN HCL [Concomitant]
  10. CYTOXAN [Suspect]
     Indication: BREAST CANCER
     Dosage: 600MG/M2
     Dates: start: 20110105, end: 20110303
  11. CHROMIUM CHLORIDE [Concomitant]

REACTIONS (7)
  - STAPHYLOCOCCAL BACTERAEMIA [None]
  - RENAL FAILURE ACUTE [None]
  - ANTIBIOTIC RESISTANT STAPHYLOCOCCUS TEST POSITIVE [None]
  - DIALYSIS [None]
  - DRUG INTERACTION [None]
  - THROMBOSIS IN DEVICE [None]
  - WOUND DRAINAGE [None]
